FAERS Safety Report 5202505-2 (Version None)
Quarter: 2006Q4

REPORT INFORMATION
  Report Type: 
  Country: None (occurrence: None)
  Receive Date: 20061016
  Receipt Date: 20060907
  Transmission Date: 20070319
  Serious: No
  Sender: FDA-Public Use
  Company Number: 2006SP003218

PATIENT
  Age: 70 Year
  Sex: Male
  Weight: 35.3806 kg

DRUGS (10)
  1. LUNESTA [Suspect]
     Indication: SLEEP DISORDER
     Dosage: 1X; ORAL
     Route: 048
     Dates: start: 20060803, end: 20060803
  2. PROVIGIL [Suspect]
     Dosage: 200 MG; QD; ORAL
     Route: 048
     Dates: start: 20060803, end: 20060807
  3. WARFARIN SODIUM [Concomitant]
  4. ASPIRIN [Concomitant]
  5. LISINOPRIL W/HYDROCHLOROTHIAZIDE [Concomitant]
  6. ATORVASTATIN CALCIUM [Concomitant]
  7. NEXIUM [Concomitant]
  8. ALLEGRA [Concomitant]
  9. ASCORBIC ACID [Concomitant]
  10. FOLIC ACID [Concomitant]

REACTIONS (2)
  - ERECTILE DYSFUNCTION [None]
  - LOGORRHOEA [None]
